FAERS Safety Report 5669417-1 (Version None)
Quarter: 2008Q1

REPORT INFORMATION
  Report Type: 
  Country: None (occurrence: None)
  Receive Date: 20080317
  Receipt Date: 20080307
  Transmission Date: 20080703
  Serious: Yes (Other)
  Sender: FDA-Public Use
  Company Number: A0713890A

PATIENT
  Age: 46 Year
  Sex: Female
  Weight: 65.9 kg

DRUGS (6)
  1. VALTREX [Suspect]
     Dosage: 1000MG PER DAY
     Route: 048
     Dates: start: 20080219
  2. VITAMIN D [Concomitant]
  3. MULTI-VITAMIN [Concomitant]
  4. MSM [Concomitant]
  5. GLUCOSAMINE [Concomitant]
  6. CALMAG [Concomitant]

REACTIONS (1)
  - HEART RATE INCREASED [None]
